FAERS Safety Report 4579641-7 (Version None)
Quarter: 2005Q1

REPORT INFORMATION
  Report Type: 
  Country: None (occurrence: None)
  Receive Date: 20050210
  Receipt Date: 20050210
  Transmission Date: 20050727
  Serious: No
  Sender: FDA-Public Use
  Company Number: None

PATIENT
  Age: 66 Year
  Sex: Female

DRUGS (2)
  1. ZETIA [Suspect]
     Indication: BLOOD CHOLESTEROL
     Dosage: 10 MG PO QD
     Route: 048
  2. LOTENSIN [Suspect]
     Indication: BLOOD PRESSURE
     Dosage: SEVERAL YEARS

REACTIONS (2)
  - OROPHARYNGEAL SWELLING [None]
  - SWELLING FACE [None]
